FAERS Safety Report 4267046-8 (Version None)
Quarter: 2004Q1

REPORT INFORMATION
  Report Type: 
  Country: None (occurrence: None)
  Receive Date: 20040108
  Receipt Date: 20031204
  Transmission Date: 20041129
  Serious: Yes (Life-Threatening, Other)
  Sender: FDA-Public Use
  Company Number: US-BRISTOL-MYERS SQUIBB COMPANY-12450466

PATIENT
  Age: 58 Year
  Sex: Female
  Weight: 74 kg

DRUGS (2)
  1. CARBOPLATIN [Suspect]
     Indication: OVARIAN CANCER
     Dosage: 3H61268/3H61268 11/5 590 MG  3F69234/3H61268 11/26 725 MG (20 MG REC'D)
     Route: 042
     Dates: start: 20031105, end: 20031105
  2. TAXOTERE [Concomitant]
     Indication: OVARIAN CANCER
     Dosage: ADDITIONAL DOSE GIVEN ON 26-NOV-03
     Dates: start: 20031105, end: 20031105

REACTIONS (2)
  - ANAPHYLACTIC SHOCK [None]
  - LOSS OF CONSCIOUSNESS [None]
